FAERS Safety Report 20235116 (Version 2)
Quarter: 2022Q1

REPORT INFORMATION
  Report Type: Spontaneous
  Country: AU (occurrence: AU)
  Receive Date: 20211227
  Receipt Date: 20220202
  Transmission Date: 20220423
  Serious: Yes (Hospitalization, Other)
  Sender: FDA-Public Use
  Company Number: AU-SUN PHARMACEUTICAL INDUSTRIES LTD-2021R1-321965

PATIENT
  Age: 41 Year
  Sex: Female

DRUGS (1)
  1. ODOMZO [Suspect]
     Active Substance: SONIDEGIB
     Indication: Basal cell carcinoma
     Dosage: UNK
     Route: 065
     Dates: start: 202107

REACTIONS (8)
  - Cholelithiasis [Unknown]
  - Intestinal malrotation [Unknown]
  - Renal impairment [Unknown]
  - Hydronephrosis [Unknown]
  - Vomiting [Unknown]
  - Abdominal pain [Unknown]
  - Retching [Unknown]
  - Diarrhoea [Unknown]

NARRATIVE: CASE EVENT DATE: 20211120
